FAERS Safety Report 5047098-8 (Version None)
Quarter: 2006Q3

REPORT INFORMATION
  Report Type: 
  Country: None (occurrence: None)
  Receive Date: 20060703
  Receipt Date: 20060619
  Transmission Date: 20061208
  Serious: Yes (Other)
  Sender: FDA-Public Use
  Company Number: 2006025029

PATIENT
  Age: 83 Year
  Sex: Female

DRUGS (3)
  1. DETROL LA [Suspect]
     Indication: MICTURITION URGENCY
     Dosage: 4 MG (4 MG, 1 IN 1 D), ORAL
     Route: 048
     Dates: start: 20050101
  2. DETROL LA [Suspect]
     Indication: POLLAKIURIA
     Dosage: 4 MG (4 MG, 1 IN 1 D), ORAL
     Route: 048
     Dates: start: 20050101
  3. NEXIUM [Concomitant]

REACTIONS (4)
  - DRUG EFFECT DECREASED [None]
  - EYE PAIN [None]
  - MEMORY IMPAIRMENT [None]
  - TRIGEMINAL NEURALGIA [None]
